FAERS Safety Report 11555118 (Version 2)
Quarter: 2015Q3

REPORT INFORMATION
  Report Type: Spontaneous
  Country: US (occurrence: US)
  Receive Date: 20150925
  Receipt Date: 20150928
  Transmission Date: 20151125
  Serious: No
  Sender: FDA-Public Use
  Company Number: CHPA2015US011272

PATIENT
  Sex: Female

DRUGS (1)
  1. VOLTAREN [Suspect]
     Active Substance: DICLOFENAC SODIUM
     Indication: PAIN IN EXTREMITY
     Dosage: UNK
     Route: 061
     Dates: start: 20150923

REACTIONS (3)
  - Fatigue [Unknown]
  - Drug dispensed to wrong patient [Unknown]
  - Product use issue [Unknown]

NARRATIVE: CASE EVENT DATE: 20150923
